FAERS Safety Report 8806623 (Version 1)
Quarter: 2012Q4

REPORT INFORMATION
  Report Type: 
  Country: FR (occurrence: FR)
  Receive Date: 20120925
  Receipt Date: 20120925
  Transmission Date: 20130627
  Serious: Yes (Hospitalization, Disabling)
  Sender: FDA-Public Use
  Company Number: FR-MERCK-2011SP053215

PATIENT
  Age: 59 Year
  Sex: Male
  Weight: 56 kg

DRUGS (12)
  1. BOCEPREVIR [Suspect]
     Indication: HEPATITIS C
     Dosage: 200 mg, qid
     Dates: start: 20110927
  2. PEGINTERFERON ALFA-2B [Suspect]
     Indication: HEPATITIS C
     Dosage: 80 ?g, QW
     Dates: start: 20110825
  3. RIBAVIRIN [Suspect]
     Indication: HEPATITIS C
     Dosage: 800 mg, QD
     Dates: start: 20110825
  4. RALTEGRAVIR [Concomitant]
     Indication: HIV INFECTION
     Dosage: 400 mg, BID
     Dates: start: 20080818
  5. EMTRICITABINE (+) TENOFOVIR DISOPROXIL FUMARATE [Concomitant]
     Indication: HIV INFECTION
     Dosage: 1 DF, QD
     Dates: start: 20090730
  6. ATENOLOL [Concomitant]
     Indication: MYOCARDIAL INFARCTION
     Dosage: 25 mg, QD
     Dates: start: 2007
  7. CRESTOR [Concomitant]
     Indication: DYSLIPIDAEMIA
     Dosage: 10 mg, QD
     Dates: start: 200903
  8. EFFEXOR [Concomitant]
     Indication: ANTIDEPRESSANT THERAPY
     Dosage: 37.5 mg, BID
     Dates: start: 200903
  9. OMEXEL [Concomitant]
     Indication: BLADDER DISORDER
     Dosage: 0.4 mg, QD
     Dates: start: 20090312
  10. TERCIAN [Concomitant]
     Indication: ANTIDEPRESSANT THERAPY
     Dosage: 25 mg, QD
     Dates: start: 20090312
  11. CARDEGIC [Concomitant]
     Indication: MYOCARDIAL INFARCTION
     Dosage: 75 mg, QD
     Dates: start: 20090730
  12. CERIS [Concomitant]
     Indication: BLADDER DISORDER
     Dosage: 20 mg, BID
     Dates: start: 20100518

REACTIONS (5)
  - Asthenia [Recovered/Resolved]
  - Decreased appetite [Recovered/Resolved]
  - Urinary tract infection [Recovered/Resolved]
  - Autonomic nervous system imbalance [Not Recovered/Not Resolved]
  - Hypotension [Not Recovered/Not Resolved]
